FAERS Safety Report 16662120 (Version 1)
Quarter: 2019Q3

REPORT INFORMATION
  Report Type: Spontaneous
  Country: PT (occurrence: PT)
  Receive Date: 20190802
  Receipt Date: 20190802
  Transmission Date: 20191004
  Serious: Yes (Other)
  Sender: FDA-Public Use
  Company Number: PHHY2019PT175387

PATIENT
  Age: 21 Year
  Sex: Female

DRUGS (3)
  1. AMOXICILLIN TRIHYDRATE +POTASSIUM CLAVULANATE [Suspect]
     Active Substance: AMOXICILLIN\CLAVULANATE POTASSIUM
     Indication: OROPHARYNGEAL PAIN
     Dosage: 30 MG/KG, QD
     Route: 065
  2. AMOXICILLIN TRIHYDRATE +POTASSIUM CLAVULANATE [Suspect]
     Active Substance: AMOXICILLIN\CLAVULANATE POTASSIUM
     Indication: LYMPHADENOPATHY
  3. AMOXICILLIN TRIHYDRATE +POTASSIUM CLAVULANATE [Suspect]
     Active Substance: AMOXICILLIN\CLAVULANATE POTASSIUM
     Indication: PYREXIA

REACTIONS (3)
  - Hypoglossal nerve paralysis [Recovered/Resolved]
  - Epstein-Barr virus infection [Recovered/Resolved]
  - Drug ineffective for unapproved indication [Unknown]
